FAERS Safety Report 7779731-1 (Version None)
Quarter: 2011Q3

REPORT INFORMATION
  Report Type: 
  Country: None (occurrence: None)
  Receive Date: 20110927
  Receipt Date: 20100824
  Transmission Date: 20111222
  Serious: No
  Sender: FDA-Public Use
  Company Number: US-ASTRAZENECA-2009UW00167

PATIENT
  Age: 44 Year
  Sex: Female
  Weight: 57.2 kg

DRUGS (8)
  1. SEROQUEL [Suspect]
     Route: 048
     Dates: start: 20030116
  2. VEETIDS [Concomitant]
     Dates: start: 20030108
  3. TOPAMAX [Concomitant]
     Dates: start: 20030116
  4. CELEXA [Concomitant]
     Dates: start: 20030116
  5. TRIAMTERENE AND HYDROCHLOROTHIAZIDE [Concomitant]
     Dates: start: 20030218
  6. SEROQUEL [Suspect]
     Indication: BIPOLAR DISORDER
     Dosage: 200 MG AND UP
     Route: 048
     Dates: start: 19990101
  7. GEODON [Concomitant]
  8. WELLBUTRIN SR [Concomitant]
     Dates: start: 20030130

REACTIONS (4)
  - WEIGHT DECREASED [None]
  - WEIGHT INCREASED [None]
  - OBESITY [None]
  - TYPE 2 DIABETES MELLITUS [None]
